FAERS Safety Report 24898361 (Version 1)
Quarter: 2025Q1

REPORT INFORMATION
  Report Type: Report from Study
  Country: US (occurrence: US)
  Receive Date: 20250129
  Receipt Date: 20250129
  Transmission Date: 20250409
  Serious: Yes (Other)
  Sender: SANOFI AVENTIS
  Company Number: US-SA-2025SA024203

PATIENT
  Age: 28 Year
  Sex: Female
  Weight: 65.91 kg

DRUGS (17)
  1. DUPILUMAB [Suspect]
     Active Substance: DUPILUMAB
     Indication: Dermatitis atopic
     Dosage: 300 MG, BIM
     Route: 058
     Dates: start: 20180822, end: 20240320
  2. ALBUTEROL [Concomitant]
     Active Substance: ALBUTEROL
     Indication: Dyspnoea
     Route: 055
     Dates: start: 20240101, end: 20240131
  3. CALCIUM [Concomitant]
     Active Substance: CALCIUM
     Indication: Routine health maintenance
     Dosage: 2.000DF QD
     Route: 048
     Dates: start: 20240106, end: 20240320
  4. COLLAGEN [Concomitant]
     Active Substance: COLLAGEN
     Indication: Pregnancy
     Dosage: 1.000DF QD
     Route: 048
     Dates: start: 20230616, end: 20231201
  5. FISH OIL [Concomitant]
     Active Substance: FISH OIL
     Indication: Pregnancy
     Dosage: 100.000MG QD
     Route: 048
     Dates: start: 20230616, end: 20240320
  6. INFLUENZA VIRUS VACCINE [Concomitant]
     Active Substance: INFLUENZA VIRUS VACCINE
     Indication: Immunisation
     Route: 030
     Dates: start: 20231108
  7. IRON [Concomitant]
     Active Substance: IRON
     Indication: Pregnancy
     Dosage: 10.000MG QD
     Route: 048
     Dates: start: 20230616, end: 20240320
  8. VITAMINS [Concomitant]
     Active Substance: VITAMINS
     Indication: Pregnancy
     Dosage: 2.000DF QD
     Route: 048
     Dates: start: 20221115, end: 20240320
  9. PROGESTERONE [Concomitant]
     Active Substance: PROGESTERONE
     Indication: Progesterone decreased
     Dosage: 100.000MG BID
     Route: 048
     Dates: start: 20230616, end: 20230818
  10. ROBITUSSIN (GUAIFENESIN) [Concomitant]
     Active Substance: GUAIFENESIN
     Indication: Cough
     Route: 048
     Dates: start: 20231026, end: 20231103
  11. ROBITUSSIN (GUAIFENESIN) [Concomitant]
     Active Substance: GUAIFENESIN
     Indication: Nasopharyngitis
  12. TYLENOL [Concomitant]
     Active Substance: ACETAMINOPHEN
     Indication: Headache
     Dosage: 1.000DF QW
     Route: 048
     Dates: start: 20230616, end: 20230915
  13. TYLENOL [Concomitant]
     Active Substance: ACETAMINOPHEN
     Indication: Nasopharyngitis
     Dosage: 5 TOTAL
     Route: 048
     Dates: start: 20231026, end: 20231103
  14. VITAMIN C [Concomitant]
     Active Substance: ASCORBIC ACID
     Indication: Pregnancy
     Dosage: 500.000MG QD
     Route: 048
     Dates: start: 20230616, end: 20240320
  15. PFIZER-BIONTECH COVID-19 VACCINE [Concomitant]
     Active Substance: TOZINAMERAN
     Route: 030
     Dates: start: 20231109
  16. UNSPECIFIED INGREDIENT [Concomitant]
     Active Substance: UNSPECIFIED INGREDIENT
     Route: 030
     Dates: start: 20240209
  17. TETANUS TOXOID, REDUCED DIPHTHERIA TOXOID AND ACELLULAR PERTUSSIS VACC [Concomitant]
     Active Substance: TETANUS TOXOID, REDUCED DIPHTHERIA TOXOID AND ACELLULAR PERTUSSIS VACCINE ADSORBED, TDAP
     Route: 030
     Dates: start: 20240118

REACTIONS (3)
  - Papulopustular rosacea [Unknown]
  - Erythema [Unknown]
  - Maternal exposure during pregnancy [Unknown]

NARRATIVE: CASE EVENT DATE: 20210809
